FAERS Safety Report 4953662-4 (Version None)
Quarter: 2006Q1

REPORT INFORMATION
  Report Type: 
  Country: None (occurrence: None)
  Receive Date: 20060324
  Receipt Date: 20051123
  Transmission Date: 20060701
  Serious: Yes (Hospitalization, Other)
  Sender: FDA-Public Use
  Company Number: US-MERCK-0511USA03989

PATIENT
  Age: 64 Year
  Sex: Female
  Weight: 95 kg

DRUGS (67)
  1. CHOLESTYRAMINE [Concomitant]
     Route: 065
     Dates: start: 20030813, end: 20050401
  2. CLARINEX [Concomitant]
     Route: 065
  3. CLARITIN [Concomitant]
     Route: 065
  4. DICYCLOMINE HYDROCHLORIDE [Concomitant]
     Route: 065
  5. DIPHENOXYLATE [Concomitant]
     Route: 065
  6. DOXYCYCLINE [Concomitant]
     Route: 065
  7. EFFEXOR [Concomitant]
     Route: 065
  8. ENDOCET [Concomitant]
     Route: 065
     Dates: start: 20040901, end: 20041001
  9. ERYTHROMYCIN [Concomitant]
     Route: 065
  10. FAMOTIDINE [Concomitant]
     Route: 065
  11. CYANOCOBALAMIN AND FOLIC ACID AND PYRIDOXINE HYDROCHLORIDE [Concomitant]
     Route: 065
  12. FOSAMAX [Concomitant]
     Route: 048
  13. FUROSEMIDE [Concomitant]
     Route: 065
     Dates: start: 20030923, end: 20031001
  14. [THERAPY UNSPECIFIED] [Concomitant]
     Route: 065
  15. GLUCOPHAGE [Concomitant]
     Route: 065
  16. GOLYTELY [Concomitant]
     Route: 065
  17. GUAIFENESIN [Concomitant]
     Route: 065
  18. ACETAMINOPHEN AND HYDROCODONE BITARTRATE [Concomitant]
     Route: 065
     Dates: start: 20010403
  19. LASIX [Concomitant]
     Route: 065
     Dates: start: 20020430
  20. LASIX [Concomitant]
     Route: 065
     Dates: end: 20041101
  21. LEVOXYL [Concomitant]
     Route: 065
  22. LOTRONEX [Concomitant]
     Route: 065
  23. MAGNESIUM OXIDE [Concomitant]
     Route: 065
  24. MECLIZINE [Concomitant]
     Route: 065
  25. METFORMIN [Concomitant]
     Route: 065
  26. OMEPRAZOLE [Concomitant]
     Route: 065
  27. OMNICEF [Concomitant]
     Route: 065
  28. ACETAMINOPHEN AND OXYCODONE HYDROCHLORIDE [Concomitant]
     Route: 065
     Dates: start: 20040823, end: 20041001
  29. PATANOL [Concomitant]
     Route: 065
  30. PAXIL [Concomitant]
     Route: 065
  31. PLAVIX [Concomitant]
     Route: 065
     Dates: start: 20041008
  32. POTASSIUM CHLORIDE [Concomitant]
     Route: 065
  33. PREDNISONE [Concomitant]
     Route: 065
  34. PREMARIN [Concomitant]
     Route: 065
     Dates: start: 20011119, end: 20020501
  35. PREVACID [Concomitant]
     Route: 065
  36. PRILOSEC [Concomitant]
     Route: 065
  37. ACETAMINOPHEN AND PROPOXYPHENE HYDROCHLORIDE [Concomitant]
     Route: 065
     Dates: start: 20020205, end: 20020301
  38. ACETAMINOPHEN AND PROPOXYPHENE HYDROCHLORIDE [Concomitant]
     Route: 065
     Dates: start: 20030923, end: 20050101
  39. Q-BID DM [Concomitant]
     Route: 065
  40. SEMPREX [Concomitant]
     Route: 065
  41. SYNTHROID [Concomitant]
     Route: 065
  42. TOBRADEX [Concomitant]
     Route: 065
  43. TOPROL-XL [Concomitant]
     Route: 065
     Dates: start: 20010622, end: 20030801
  44. TRICOR [Concomitant]
     Route: 065
     Dates: start: 20010122, end: 20030301
  45. TUSSIONEX (CHLORPHENIRAMINE POLISTIREX (+) HYDROCODONE POLISTIREX) [Concomitant]
     Route: 065
  46. VASOTEC RPD [Concomitant]
     Route: 065
     Dates: start: 20031014, end: 20031101
  47. VERAPAMIL [Concomitant]
     Route: 065
     Dates: start: 20010221
  48. WARFARIN [Concomitant]
     Route: 065
  49. ZETIA [Concomitant]
     Route: 065
     Dates: start: 20040628
  50. ZITHROMAX [Concomitant]
     Route: 065
  51. VIOXX [Suspect]
     Indication: ARTHRITIS
     Route: 048
     Dates: start: 19991227, end: 20041001
  52. ACETAMINOPHEN AND CODEINE [Concomitant]
     Route: 065
     Dates: start: 20020719, end: 20030501
  53. ACETASOL [Concomitant]
     Route: 065
  54. ACETIC ACID [Concomitant]
     Route: 065
  55. ALLEGRA [Concomitant]
     Route: 065
  56. ALTACE [Concomitant]
     Route: 065
     Dates: start: 20010604
  57. AMARYL [Concomitant]
     Route: 065
  58. AMBIEN [Concomitant]
     Route: 065
  59. ARTHROTEC [Concomitant]
     Route: 065
     Dates: start: 20010330, end: 20010501
  60. ASPIRIN [Concomitant]
     Route: 065
     Dates: start: 19950101
  61. ATENOLOL [Concomitant]
     Route: 065
     Dates: start: 20031014
  62. AVELOX [Concomitant]
     Route: 065
  63. BENICAR [Concomitant]
     Route: 065
     Dates: start: 20031119, end: 20040101
  64. BENZONATATE [Concomitant]
     Route: 065
  65. CEFACLOR [Concomitant]
     Route: 065
  66. CELEXA [Concomitant]
     Route: 065
  67. CEPHALEXIN [Concomitant]
     Route: 065

REACTIONS (31)
  - ANXIETY [None]
  - ARTERIOSCLEROSIS [None]
  - BACTERIAL INFECTION [None]
  - BLOOD CHOLESTEROL INCREASED [None]
  - BLOOD TRIGLYCERIDES INCREASED [None]
  - CEREBROVASCULAR ACCIDENT [None]
  - CONSTIPATION [None]
  - COUGH [None]
  - DEPRESSION [None]
  - DIABETES MELLITUS [None]
  - DIZZINESS [None]
  - DYSPEPSIA [None]
  - EAR INFECTION [None]
  - EYE INFECTION [None]
  - EYE IRRITATION [None]
  - GALLBLADDER DISORDER [None]
  - GASTROOESOPHAGEAL REFLUX DISEASE [None]
  - HERNIA [None]
  - HYPERSENSITIVITY [None]
  - HYPOTHYROIDISM [None]
  - INFECTION [None]
  - INSOMNIA [None]
  - IRRITABLE BOWEL SYNDROME [None]
  - MYOCARDIAL INFARCTION [None]
  - NASAL CONGESTION [None]
  - OEDEMA [None]
  - OSTEOARTHRITIS [None]
  - OSTEOPENIA [None]
  - RHINITIS ALLERGIC [None]
  - SKIN INFECTION [None]
  - SLEEP APNOEA SYNDROME [None]
